FAERS Safety Report 21822225 (Version 1)
Quarter: 2023Q1

REPORT INFORMATION
  Report Type: Spontaneous
  Country: BE (occurrence: BE)
  Receive Date: 20230105
  Receipt Date: 20230105
  Transmission Date: 20230417
  Serious: Yes (Other)
  Sender: FDA-Public Use
  Company Number: None

PATIENT
  Age: 52 Year
  Sex: Female
  Weight: 92.6 kg

DRUGS (18)
  1. KEYTRUDA [Suspect]
     Active Substance: PEMBROLIZUMAB
     Indication: Adenocarcinoma
     Dosage: 200MG 3-WEEKLY FIRST ADMINISTRATION ON 21-OCT-2022 NEXT ADMINISTRATION ON 14-NOV-2022 FIRST OCCURREN
     Route: 042
     Dates: start: 20221021, end: 20221114
  2. PACLITAXEL [Suspect]
     Active Substance: PACLITAXEL
     Indication: Adenocarcinoma
     Dosage: 174.4 MILLIGRAM
     Dates: start: 20221021
  3. PACLITAXEL [Suspect]
     Active Substance: PACLITAXEL
     Dosage: 174.4 MILLIGRAM
     Dates: start: 20221031
  4. PACLITAXEL [Suspect]
     Active Substance: PACLITAXEL
     Dosage: 174.4 MILLIGRAM
     Dates: start: 20221107
  5. PACLITAXEL [Suspect]
     Active Substance: PACLITAXEL
     Dosage: 174.4 MILLIGRAM
     Dates: start: 20221114
  6. PACLITAXEL [Suspect]
     Active Substance: PACLITAXEL
     Dosage: 174.4 MILLIGRAM
     Dates: start: 20221121
  7. PACLITAXEL [Suspect]
     Active Substance: PACLITAXEL
     Dosage: 156 MILLIGRAM
     Dates: start: 20221128
  8. PACLITAXEL [Suspect]
     Active Substance: PACLITAXEL
     Dosage: 156 MILLIGRAM
     Dates: start: 20221205
  9. PACLITAXEL [Suspect]
     Active Substance: PACLITAXEL
     Dosage: 171.2 MILLIGRAM
     Dates: start: 20221219
  10. CARBOPLATIN [Suspect]
     Active Substance: CARBOPLATIN
     Indication: Adenocarcinoma
     Dosage: 172.5 MILLIGRAM
     Dates: start: 20221021
  11. CARBOPLATIN [Suspect]
     Active Substance: CARBOPLATIN
     Dosage: 171 MILLIGRAM
     Dates: start: 20221031
  12. CARBOPLATIN [Suspect]
     Active Substance: CARBOPLATIN
     Dosage: 163.5 MILLIGRAM
     Dates: start: 20221107
  13. CARBOPLATIN [Suspect]
     Active Substance: CARBOPLATIN
     Dosage: 169.5 MILLIGRAM
     Dates: start: 20221114
  14. CARBOPLATIN [Suspect]
     Active Substance: CARBOPLATIN
     Dosage: 120 MILLIGRAM
     Dates: start: 20221121
  15. CARBOPLATIN [Suspect]
     Active Substance: CARBOPLATIN
     Dosage: 106.5 MILLIGRAM
     Dates: start: 20221219
  16. COVERAM [Concomitant]
     Active Substance: AMLODIPINE\PERINDOPRIL
  17. IBUPROFEN [Concomitant]
     Active Substance: IBUPROFEN
  18. AUGMENTIN [Concomitant]
     Active Substance: AMOXICILLIN\CLAVULANATE POTASSIUM

REACTIONS (5)
  - Haematuria [Unknown]
  - Urinary sediment [Unknown]
  - Pyuria [Unknown]
  - Acute kidney injury [Unknown]
  - Blood creatine increased [Unknown]

NARRATIVE: CASE EVENT DATE: 20221121
